FAERS Safety Report 25544879 (Version 1)
Quarter: 2025Q3

REPORT INFORMATION
  Report Type: Spontaneous
  Country: US (occurrence: US)
  Receive Date: 20250711
  Receipt Date: 20250711
  Transmission Date: 20251020
  Serious: No
  Sender: ABBVIE
  Company Number: US-ABBVIE-6360834

PATIENT
  Sex: Male

DRUGS (4)
  1. DALBAVANCIN [Suspect]
     Active Substance: DALBAVANCIN
     Indication: Staphylococcal infection
     Route: 065
  2. MINOCYCLINE [Suspect]
     Active Substance: MINOCYCLINE HYDROCHLORIDE
     Indication: Staphylococcal infection
     Route: 065
  3. TEDIZOLID [Suspect]
     Active Substance: TEDIZOLID
     Indication: Staphylococcal infection
     Route: 065
  4. VANCOMYCIN [Suspect]
     Active Substance: VANCOMYCIN
     Indication: Staphylococcal infection
     Route: 065

REACTIONS (4)
  - Arthritis infective [Unknown]
  - Bacteraemia [Unknown]
  - Drug intolerance [Unknown]
  - Adverse drug reaction [Unknown]
